FAERS Safety Report 9424310 (Version 1)
Quarter: 2013Q3

REPORT INFORMATION
  Report Type: Spontaneous
  Country: US (occurrence: None)
  Receive Date: 20130726
  Receipt Date: 20130726
  Transmission Date: 20140515
  Serious: No
  Sender: FDA-Public Use
  Company Number: None

PATIENT
  Age: 58 Year
  Sex: Male
  Weight: 92.9 kg

DRUGS (2)
  1. XELODA [Suspect]
     Dates: end: 20130613
  2. GEMCITABINE HYDROCHLORIDE [Suspect]
     Dates: end: 20121204

REACTIONS (3)
  - Abdominal pain upper [None]
  - Flatulence [None]
  - Abdominal distension [None]
